FAERS Safety Report 7822153-5 (Version None)
Quarter: 2011Q4

REPORT INFORMATION
  Report Type: 
  Country: None (occurrence: None)
  Receive Date: 20111018
  Receipt Date: 20101203
  Transmission Date: 20120403
  Serious: No
  Sender: FDA-Public Use
  Company Number: US-ASTRAZENECA-2010SE57484

PATIENT
  Age: 81 Year
  Sex: Female
  Weight: 81.6 kg

DRUGS (3)
  1. XANAX [Concomitant]
     Route: 048
  2. SYMBICORT [Suspect]
     Indication: CHRONIC OBSTRUCTIVE PULMONARY DISEASE
     Dosage: 160/ 4.5  2 PUFFS BID
     Route: 055
     Dates: start: 20080101
  3. NEXIUM [Concomitant]
     Indication: GASTROOESOPHAGEAL REFLUX DISEASE
     Route: 048

REACTIONS (2)
  - DYSPNOEA [None]
  - DRUG DOSE OMISSION [None]
